FAERS Safety Report 4721763-1 (Version None)
Quarter: 2005Q3

REPORT INFORMATION
  Report Type: 
  Country: None (occurrence: None)
  Receive Date: 20050721
  Receipt Date: 20050404
  Transmission Date: 20060218
  Serious: No
  Sender: FDA-Public Use
  Company Number: US-BRISTOL-MYERS SQUIBB COMPANY-12919619

PATIENT
  Age: 71 Year
  Sex: Female
  Weight: 76 kg

DRUGS (4)
  1. COUMADIN [Suspect]
     Indication: ATRIAL FIBRILLATION
     Dosage: 4 MG X 3 DAYS PER WEEK AND 6 MG X 4 DAYS PER WEEK
     Dates: start: 19960101
  2. HYDROXYZINE HCL [Concomitant]
  3. L-THYROXINE [Concomitant]
  4. PERI-COLACE [Concomitant]

REACTIONS (2)
  - PHOTOSENSITIVITY REACTION [None]
  - RASH PRURITIC [None]
